FAERS Safety Report 11478750 (Version 2)
Quarter: 2016Q3

REPORT INFORMATION
  Report Type: Spontaneous
  Country: US (occurrence: US)
  Receive Date: 20150909
  Receipt Date: 20160920
  Transmission Date: 20161109
  Serious: No
  Sender: FDA-Public Use
  Company Number: US-JAZZ-2015-US-010232

PATIENT
  Sex: Female

DRUGS (8)
  1. BENADRYL ITCH STOPPING GEL MAXIMUM STRENGTH [Concomitant]
     Dosage: UNK
  2. PROZAC [Concomitant]
     Active Substance: FLUOXETINE HYDROCHLORIDE
  3. CLARITIN [Concomitant]
     Active Substance: LORATADINE
  4. XYREM [Suspect]
     Active Substance: SODIUM OXYBATE
     Dosage: DOSE ADJUSTMENTS
     Route: 048
     Dates: start: 201506, end: 201507
  5. XYREM [Suspect]
     Active Substance: SODIUM OXYBATE
     Dosage: 4.5 G, BID
     Route: 048
     Dates: start: 201507
  6. GARLIC. [Concomitant]
     Active Substance: GARLIC
  7. TEA TREE OIL. [Concomitant]
     Active Substance: TEA TREE OIL
  8. XYREM [Suspect]
     Active Substance: SODIUM OXYBATE
     Indication: NARCOLEPSY
     Dosage: 2.25 G, BID
     Route: 048
     Dates: start: 201506, end: 201506

REACTIONS (2)
  - Tooth disorder [Not Recovered/Not Resolved]
  - Swelling [Not Recovered/Not Resolved]
